FAERS Safety Report 24005980 (Version 1)
Quarter: 2024Q2

REPORT INFORMATION
  Report Type: Spontaneous
  Country: US (occurrence: US)
  Receive Date: 20240624
  Receipt Date: 20240624
  Transmission Date: 20240715
  Serious: No
  Sender: FDA-Public Use
  Company Number: US-MAYNE PHARMA-2023TMD00354

PATIENT

DRUGS (5)
  1. IMVEXXY [Suspect]
     Active Substance: ESTRADIOL
     Indication: Menopausal symptoms
     Dosage: 10 ?G, 1X/DAY
     Route: 067
     Dates: start: 20230702, end: 20230705
  2. IMVEXXY [Suspect]
     Active Substance: ESTRADIOL
     Indication: Vulvovaginal dryness
  3. IMVEXXY [Suspect]
     Active Substance: ESTRADIOL
     Indication: Cystocele
  4. VITAMINS NOS [Concomitant]
     Active Substance: VITAMINS
  5. MAGNESIUM [Concomitant]
     Active Substance: MAGNESIUM

REACTIONS (4)
  - Discomfort [Unknown]
  - Pain in extremity [Recovering/Resolving]
  - Abdominal pain lower [Not Recovered/Not Resolved]
  - Headache [Recovered/Resolved]

NARRATIVE: CASE EVENT DATE: 20230702
